FAERS Safety Report 5720721-8 (Version None)
Quarter: 2008Q2

REPORT INFORMATION
  Report Type: 
  Country: None (occurrence: None)
  Receive Date: 20080425
  Receipt Date: 20080425
  Transmission Date: 20081010
  Serious: No
  Sender: FDA-Public Use
  Company Number: None

PATIENT
  Age: 51 Year
  Sex: Female
  Weight: 108.41 kg

DRUGS (1)
  1. PSEUDOEPHEDRINE HCL [Suspect]
     Indication: SINUSITIS
     Dosage: 30 MG  PRN  PO
     Route: 048
     Dates: start: 20080207, end: 20080308

REACTIONS (2)
  - AGITATION [None]
  - TACHYCARDIA [None]
